FAERS Safety Report 12313137 (Version 3)
Quarter: 2016Q2

REPORT INFORMATION
  Report Type: Spontaneous
  Country: FI (occurrence: FI)
  Receive Date: 20160428
  Receipt Date: 20160609
  Transmission Date: 20160815
  Serious: Yes (Death, Other)
  Sender: FDA-Public Use
  Company Number: FI-009507513-1604FIN015334

PATIENT
  Age: 62 Year
  Sex: Male

DRUGS (3)
  1. CIPROFLOXACIN. [Concomitant]
     Active Substance: CIPROFLOXACIN
     Indication: ANTIBIOTIC THERAPY
  2. LEVOSIMENDAN [Concomitant]
     Active Substance: LEVOSIMENDAN
     Indication: CARDIAC FAILURE
  3. ZERBAXA [Suspect]
     Active Substance: CEFTOLOZANE SULFATE\TAZOBACTAM SODIUM
     Indication: PSEUDOMONAL SEPSIS
     Dosage: 2 G, THREE TIME A DAY WITH 4-HOUR-INFUSION
     Route: 041
     Dates: start: 20160413, end: 201604

REACTIONS (5)
  - Thrombosis [Unknown]
  - Multiple organ dysfunction syndrome [Fatal]
  - Extremity necrosis [Unknown]
  - Lymphoma transformation [Fatal]
  - Pseudomonal sepsis [Fatal]
